FAERS Safety Report 8845326 (Version 1)
Quarter: 2012Q4

REPORT INFORMATION
  Report Type: Report from Study
  Country: US (occurrence: US)
  Receive Date: 20121017
  Receipt Date: 20121017
  Transmission Date: 20130627
  Serious: Yes (Other)
  Sender: FDA-Public Use
  Company Number: US-JNJFOC-20121007409

PATIENT
  Sex: Female
  Weight: 65.77 kg

DRUGS (2)
  1. REMICADE [Suspect]
     Indication: COLITIS ULCERATIVE
     Route: 042
     Dates: start: 201110, end: 201201
  2. ULCERATIVE COLITIS MEDICATION [Concomitant]
     Indication: COLITIS ULCERATIVE

REACTIONS (9)
  - Pleurisy [Recovering/Resolving]
  - Painful respiration [Recovering/Resolving]
  - Lupus-like syndrome [Not Recovered/Not Resolved]
  - Antinuclear antibody positive [Not Recovered/Not Resolved]
  - Arthralgia [Recovered/Resolved]
  - Lyme disease [Not Recovered/Not Resolved]
  - Fatigue [Recovering/Resolving]
  - Malaise [Recovering/Resolving]
  - Insomnia [Recovering/Resolving]
